FAERS Safety Report 10789255 (Version 1)
Quarter: 2015Q1

REPORT INFORMATION
  Report Type: Spontaneous
  Country: US (occurrence: None)
  Receive Date: 20150211
  Receipt Date: 20150211
  Transmission Date: 20150721
  Serious: No
  Sender: FDA-Public Use
  Company Number: None

PATIENT
  Age: 67 Year
  Sex: Female

DRUGS (8)
  1. AMPYRA [Suspect]
     Active Substance: DALFAMPRIDINE
     Indication: MULTIPLE SCLEROSIS
     Route: 048
     Dates: start: 201010
  2. FOSAMAX [Concomitant]
     Active Substance: ALENDRONATE SODIUM
  3. LEVOTHYROXINE [Concomitant]
     Active Substance: LEVOTHYROXINE
  4. BACLOFEN. [Concomitant]
     Active Substance: BACLOFEN
  5. MVI [Concomitant]
     Active Substance: VITAMINS
  6. OXYBUTYNIN [Concomitant]
     Active Substance: OXYBUTYNIN
  7. CALCIUM + VIT. D [Concomitant]
  8. AMPYRA [Concomitant]
     Active Substance: DALFAMPRIDINE

REACTIONS (1)
  - Urinary tract infection [None]

NARRATIVE: CASE EVENT DATE: 20130531
